FAERS Safety Report 12597057 (Version 2)
Quarter: 2016Q3

REPORT INFORMATION
  Report Type: Spontaneous
  Country: US (occurrence: US)
  Receive Date: 20160726
  Receipt Date: 20160816
  Transmission Date: 20161109
  Serious: Yes (Hospitalization, Other)
  Sender: FDA-Public Use
  Company Number: US-SAOL THERAPEUTICS-2016SAO00234

PATIENT
  Age: 56 Year
  Sex: Female

DRUGS (15)
  1. BACLOFEN. [Suspect]
     Active Substance: BACLOFEN
     Indication: MUSCLE SPASTICITY
     Dosage: UNK
     Route: 037
  2. FOSAMAX [Suspect]
     Active Substance: ALENDRONATE SODIUM
  3. MACRODANTIN [Suspect]
     Active Substance: NITROFURANTOIN
  4. VESICARE [Suspect]
     Active Substance: SOLIFENACIN SUCCINATE
  5. ZOLOFT [Suspect]
     Active Substance: SERTRALINE HYDROCHLORIDE
  6. FENTANYL. [Suspect]
     Active Substance: FENTANYL
     Route: 037
  7. CRESTOR [Suspect]
     Active Substance: ROSUVASTATIN CALCIUM
  8. ADDERALL [Suspect]
     Active Substance: AMPHETAMINE ASPARTATE\AMPHETAMINE SULFATE\DEXTROAMPHETAMINE SACCHARATE\DEXTROAMPHETAMINE SULFATE
  9. FISH OIL [Suspect]
     Active Substance: FISH OIL
  10. AMPYRA [Suspect]
     Active Substance: DALFAMPRIDINE
  11. BENADRYL [Suspect]
     Active Substance: DIPHENHYDRAMINE HYDROCHLORIDE
  12. MULTIVITAMIN [Suspect]
     Active Substance: VITAMINS
  13. GABAPENTIN. [Concomitant]
     Active Substance: GABAPENTIN
     Dosage: UNK
  14. GILENYA [Suspect]
     Active Substance: FINGOLIMOD HYDROCHLORIDE
  15. FLONASE [Suspect]
     Active Substance: FLUTICASONE PROPIONATE

REACTIONS (4)
  - Pain [Recovered/Resolved]
  - Sensory loss [Recovered/Resolved]
  - Performance status decreased [Recovered/Resolved]
  - Multiple sclerosis relapse [Recovered/Resolved]

NARRATIVE: CASE EVENT DATE: 20160421
